FAERS Safety Report 4466197-2 (Version None)
Quarter: 2004Q3

REPORT INFORMATION
  Report Type: 
  Country: None (occurrence: None)
  Receive Date: 20040930
  Receipt Date: 20040922
  Transmission Date: 20050211
  Serious: Yes (Death)
  Sender: FDA-Public Use
  Company Number: 04H-144-0274493-00

PATIENT

DRUGS (11)
  1. LEUCOVORIN CALCIUM [Suspect]
     Indication: CHEMOTHERAPY
     Dosage: 200 MG/M2, DAY 1, EVERY 14 DAYS, INTRAVENOUS
     Route: 042
  2. PACLITAXEL [Suspect]
     Indication: CHEMOTHERAPY
     Dosage: 175 MG/M2, DAY 1, EVERY 14 DAYS, INTRAVENOUS
     Route: 042
  3. CISPLATIN [Suspect]
     Indication: CHEMOTHERAPY
     Dosage: 35 MG/M2, DAYS 1 + 2, EVERY 14 DAYS, INTRAVENOUS
     Route: 042
  4. FLUOROURACIL [Suspect]
     Indication: CHEMOTHERAPY
     Dosage: 1000 MG/M2, DAYS 1-2, EVERY 14 DAYS, INTRAVENOUS
     Route: 042
  5. DEXAMETHASONE [Concomitant]
  6. DIPHENHYDRAMINE HCL [Concomitant]
  7. CIMETIDINE [Concomitant]
  8. MANNITOL [Concomitant]
  9. ONDANSETRON [Concomitant]
  10. IV FLUIDS [Concomitant]
  11. FILGRASTIM [Concomitant]

REACTIONS (3)
  - CATHETER RELATED COMPLICATION [None]
  - PULMONARY EMBOLISM [None]
  - THROMBOSIS [None]
